FAERS Safety Report 6245834-6 (Version None)
Quarter: 2009Q2

REPORT INFORMATION
  Report Type: 
  Country: None (occurrence: None)
  Receive Date: 20090625
  Receipt Date: 20090515
  Transmission Date: 20091009
  Serious: Yes (Death, Other)
  Sender: FDA-Public Use
  Company Number: US-BAXTER-2008BH010999

PATIENT
  Age: 56 Year
  Sex: Female
  Weight: 64 kg

DRUGS (1)
  1. HEPARIN SODIUM INJECTION [Suspect]
     Indication: DRUG USE FOR UNKNOWN INDICATION
     Route: 058
     Dates: start: 20080221, end: 20080329

REACTIONS (22)
  - ABDOMINAL PAIN UPPER [None]
  - BACTERAEMIA [None]
  - BLOOD GLUCOSE INCREASED [None]
  - BREATH SOUNDS ABNORMAL [None]
  - CARDIAC VALVE VEGETATION [None]
  - CHRONIC OBSTRUCTIVE PULMONARY DISEASE [None]
  - COLD SWEAT [None]
  - DYSPNOEA [None]
  - ENDOCARDITIS BACTERIAL [None]
  - ENTEROCOCCAL INFECTION [None]
  - GENERALISED OEDEMA [None]
  - HEART RATE INCREASED [None]
  - HYPERHIDROSIS [None]
  - HYPOTENSION [None]
  - INJECTION SITE PAIN [None]
  - MITRAL VALVE DISEASE [None]
  - RENAL FAILURE ACUTE [None]
  - RESPIRATORY DISTRESS [None]
  - RESPIRATORY FAILURE [None]
  - SUPRAVENTRICULAR TACHYCARDIA [None]
  - TRICUSPID VALVE DISEASE [None]
  - WHEEZING [None]
